FAERS Safety Report 5806716-4 (Version None)
Quarter: 2008Q3

REPORT INFORMATION
  Report Type: 
  Country: None (occurrence: None)
  Receive Date: 20080709
  Receipt Date: 20080709
  Transmission Date: 20090109
  Serious: No
  Sender: FDA-Public Use
  Company Number: None

PATIENT
  Sex: Female
  Weight: 97.5234 kg

DRUGS (2)
  1. PROPOXYPHENE HCL AND ACETAMINOPHEN [Suspect]
     Indication: ARTHRITIS
     Dosage: 100-650MG TAKE 1 PO Q6H PRN PO
     Route: 048
     Dates: start: 20080622, end: 20080626
  2. PROPOXYPHENE HCL AND ACETAMINOPHEN [Suspect]
     Indication: OSTEOARTHRITIS
     Dosage: 100-650MG TAKE 1 PO Q6H PRN PO
     Route: 048
     Dates: start: 20080622, end: 20080626

REACTIONS (3)
  - CHEST DISCOMFORT [None]
  - DYSPNOEA [None]
  - SWELLING [None]
